FAERS Safety Report 9900325 (Version 1)
Quarter: 2014Q1

REPORT INFORMATION
  Report Type: Spontaneous
  Country: US (occurrence: US)
  Receive Date: 20140216
  Receipt Date: 20140216
  Transmission Date: 20141002
  Serious: No
  Sender: FDA-Public Use
  Company Number: US-009507513-1402USA006121

PATIENT
  Sex: Female

DRUGS (7)
  1. JANUMET XR [Suspect]
     Indication: TYPE 2 DIABETES MELLITUS
     Dosage: 1 DF, QPM
     Route: 048
     Dates: start: 201301, end: 201307
  2. LOVAZA [Concomitant]
  3. PRINIVIL [Concomitant]
     Route: 048
  4. PLAVIX [Concomitant]
  5. ZOLOFT [Concomitant]
  6. BENTYL [Concomitant]
  7. IRON (UNSPECIFIED) [Concomitant]

REACTIONS (3)
  - Weight decreased [Recovering/Resolving]
  - Abdominal distension [Recovering/Resolving]
  - Inappropriate schedule of drug administration [Unknown]
